FAERS Safety Report 9982815 (Version 1)
Quarter: 2014Q1

REPORT INFORMATION
  Report Type: Report from Study
  Country: US (occurrence: US)
  Receive Date: 20140307
  Receipt Date: 20140307
  Transmission Date: 20141002
  Serious: No
  Sender: FDA-Public Use
  Company Number: US-ABBVIE-13P-163-1177634-00

PATIENT
  Age: 30 Year
  Sex: Male

DRUGS (6)
  1. HUMIRA [Suspect]
     Indication: CROHN^S DISEASE
     Dates: start: 20131130, end: 20131130
  2. HUMIRA [Suspect]
  3. IMURAN [Concomitant]
     Indication: CROHN^S DISEASE
  4. PREDNISONE [Concomitant]
     Indication: CROHN^S DISEASE
  5. VICODIN [Concomitant]
     Indication: PAIN
  6. LOPERAMIDE [Concomitant]
     Indication: PRODUCT USED FOR UNKNOWN INDICATION

REACTIONS (5)
  - Pollakiuria [Unknown]
  - Injection site pain [Recovered/Resolved]
  - Injection site pain [Recovered/Resolved]
  - Constipation [Recovered/Resolved]
  - Dysuria [Unknown]
